FAERS Safety Report 5066486-7 (Version None)
Quarter: 2006Q3

REPORT INFORMATION
  Report Type: 
  Country: None (occurrence: None)
  Receive Date: 20060717
  Receipt Date: 20050509
  Transmission Date: 20061208
  Serious: Yes (Other)
  Sender: FDA-Public Use
  Company Number: 2005-07-1214

PATIENT
  Age: 44 Year
  Sex: Male

DRUGS (6)
  1. INTEGRILIN [Suspect]
     Indication: PERCUTANEOUS CORONARY INTERVENTION
     Dosage: 180 UG INTRAVENOUS; SEE IMAGE
     Route: 042
  2. HEPARIN [Suspect]
     Indication: PERCUTANEOUS CORONARY INTERVENTION
     Dosage: 4500 IU INTRAVENOUS
     Route: 042
  3. CLOPIDOGREL [Suspect]
     Dosage: 75 MG QD
  4. ASPIRIN [Suspect]
     Dosage: 325 MG QD
  5. ATENOLOL [Concomitant]
  6. HYDROXYCHLOROQUINE SULFATE [Concomitant]

REACTIONS (4)
  - ANGINA PECTORIS [None]
  - LEUKOPENIA [None]
  - NEUTROPENIA [None]
  - THROMBOCYTOPENIA [None]
